FAERS Safety Report 17206181 (Version 1)
Quarter: 2019Q4

REPORT INFORMATION
  Report Type: Spontaneous
  Country: SE (occurrence: SE)
  Receive Date: 20191227
  Receipt Date: 20191227
  Transmission Date: 20200122
  Serious: Yes (Hospitalization)
  Sender: FDA-Public Use
  Company Number: SE-009507513-1912SWE009962

PATIENT
  Sex: Male

DRUGS (4)
  1. IMOVANE [Suspect]
     Active Substance: ZOPICLONE
     Dosage: 22.5 MILLIGRAM, ONCE
     Route: 048
     Dates: start: 20190118, end: 20190118
  2. PROPAVAN [Suspect]
     Active Substance: PROPIOMAZINE
     Dosage: 3 PROPAVAN
     Route: 048
     Dates: start: 20190118, end: 20190118
  3. ATARAX [Suspect]
     Active Substance: HYDROXYZINE HYDROCHLORIDE
     Dosage: 1 UNK, ONCE
     Route: 048
     Dates: start: 20190118, end: 20190118
  4. MIRTAZAPINE. [Suspect]
     Active Substance: MIRTAZAPINE
     Dosage: 2 PIECES

REACTIONS (2)
  - Product selection error [Unknown]
  - Accidental overdose [Unknown]

NARRATIVE: CASE EVENT DATE: 20190118
